FAERS Safety Report 8066500-0 (Version None)
Quarter: 2012Q1

REPORT INFORMATION
  Report Type: 
  Country: None (occurrence: None)
  Receive Date: 20120124
  Receipt Date: 20120117
  Transmission Date: 20120608
  Serious: Yes (Other)
  Sender: FDA-Public Use
  Company Number: US-PFIZER INC-2012014420

PATIENT
  Sex: Female
  Weight: 77.098 kg

DRUGS (4)
  1. OXYCODONE [Concomitant]
     Indication: PAIN
     Dosage: 15 MG, 4X/DAY
  2. LYRICA [Suspect]
     Dosage: UNK, DAILY
     Route: 048
     Dates: end: 20120110
  3. LYRICA [Suspect]
     Indication: PAIN
     Dosage: UNK
     Route: 048
     Dates: start: 20050101
  4. OXYCODONE [Concomitant]
     Dosage: 30 MG, 2X/DAY

REACTIONS (4)
  - SOMNOLENCE [None]
  - MEMORY IMPAIRMENT [None]
  - INSOMNIA [None]
  - DRUG DEPENDENCE [None]
